FAERS Safety Report 22598638 (Version 1)
Quarter: 2023Q2

REPORT INFORMATION
  Report Type: Spontaneous
  Country: US (occurrence: US)
  Receive Date: 20230614
  Receipt Date: 20230614
  Transmission Date: 20230721
  Serious: No
  Sender: FDA-Public Use
  Company Number: US-PHARMING-PHAUS2023000414

PATIENT

DRUGS (10)
  1. RUCONEST [Suspect]
     Active Substance: HUMAN C1-ESTERASE INHIBITOR
     Indication: Hereditary angioedema
     Dosage: 4200 IU, TWICE WEEKLY
     Route: 042
     Dates: start: 20220215
  2. COLCHICINE [Concomitant]
     Active Substance: COLCHICINE
     Indication: Product used for unknown indication
  3. EPINEPHRINE [Concomitant]
     Active Substance: EPINEPHRINE
     Indication: Product used for unknown indication
  4. HYDROXYCHLOROQUINE SULFATE [Concomitant]
     Active Substance: HYDROXYCHLOROQUINE SULFATE
     Indication: Product used for unknown indication
  5. PROGESTERONE [Concomitant]
     Active Substance: PROGESTERONE
     Indication: Product used for unknown indication
  6. GABAPENTIN [Concomitant]
     Active Substance: GABAPENTIN
     Indication: Product used for unknown indication
  7. SYNTHROID [Concomitant]
     Active Substance: LEVOTHYROXINE SODIUM
     Indication: Product used for unknown indication
  8. BIVIGAM [Concomitant]
     Active Substance: HUMAN IMMUNOGLOBULIN G
     Indication: Product used for unknown indication
  9. NP THYROID [Concomitant]
     Active Substance: LEVOTHYROXINE\LIOTHYRONINE
     Indication: Product used for unknown indication
  10. FISH OIL [Concomitant]
     Active Substance: FISH OIL
     Indication: Product used for unknown indication

REACTIONS (2)
  - COVID-19 [Unknown]
  - Intentional product use issue [Unknown]

NARRATIVE: CASE EVENT DATE: 20220101
